FAERS Safety Report 5285412-9 (Version None)
Quarter: 2007Q2

REPORT INFORMATION
  Report Type: 
  Country: None (occurrence: None)
  Receive Date: 20070403
  Receipt Date: 20070326
  Transmission Date: 20071010
  Serious: Yes (Other)
  Sender: FDA-Public Use
  Company Number: JP-MERCK-0611USA03853

PATIENT
  Age: 48 Year
  Sex: Male
  Weight: 68 kg

DRUGS (5)
  1. PROPECIA [Suspect]
     Indication: MALE PATTERN BALDNESS
     Route: 048
     Dates: start: 20060926
  2. AMLODIN [Concomitant]
     Indication: HYPERTENSION
     Route: 048
     Dates: start: 20060601
  3. AMLODIN [Concomitant]
     Route: 048
     Dates: start: 20051125, end: 20060601
  4. BLOPRESS [Concomitant]
     Indication: HYPERTENSION
     Route: 048
     Dates: start: 20060907, end: 20061107
  5. BLOPRESS [Concomitant]
     Route: 048
     Dates: start: 20060705, end: 20060901

REACTIONS (1)
  - BLOOD PRESSURE DECREASED [None]
